FAERS Safety Report 8534751-4 (Version None)
Quarter: 2012Q3

REPORT INFORMATION
  Report Type: 
  Country: None (occurrence: None)
  Receive Date: 20120724
  Receipt Date: 20120716
  Transmission Date: 20120928
  Serious: Yes (Hospitalization, Other)
  Sender: FDA-Public Use
  Company Number: US-GENZYME-MOZO-1000727

PATIENT
  Sex: Female

DRUGS (9)
  1. CYTARABINE [Concomitant]
     Indication: ACUTE MYELOID LEUKAEMIA
     Dosage: UNK
     Route: 042
     Dates: start: 20120604, end: 20120609
  2. MORPHINE SULFATE [Concomitant]
     Indication: ACUTE MYELOID LEUKAEMIA
     Dosage: 5 MG/ML, UNK
     Route: 065
     Dates: start: 20120702
  3. ONDANSETRON [Concomitant]
     Indication: PRODUCT USED FOR UNKNOWN INDICATION
     Dosage: 6 MG, UNK
     Route: 065
     Dates: start: 20120604
  4. ETOPOSIDE [Concomitant]
     Indication: ACUTE MYELOID LEUKAEMIA
     Dosage: UNK
     Route: 042
     Dates: start: 20120604, end: 20120609
  5. SOLUTIONS FOR PARENTERAL NUTRITION [Concomitant]
     Indication: PARENTERAL NUTRITION
     Dosage: 109 ML, UNK
     Route: 051
     Dates: start: 20120704, end: 20120705
  6. MOZOBIL [Suspect]
     Indication: ACUTE MYELOID LEUKAEMIA
     Dosage: UNK MG/M2, QD
     Route: 042
     Dates: start: 20120604, end: 20120609
  7. VANCOMYCIN [Concomitant]
     Indication: ANTI-INFECTIVE THERAPY
     Dosage: 1000 MG, UNK
     Route: 065
     Dates: start: 20120701
  8. ACETAMINOPHEN [Concomitant]
     Indication: PRODUCT USED FOR UNKNOWN INDICATION
     Dosage: 650 MG, UNK
     Route: 065
     Dates: start: 20120528
  9. MEROPENEM [Concomitant]
     Indication: ANTI-INFECTIVE THERAPY
     Dosage: 850 MG, UNK
     Route: 065
     Dates: start: 20120630

REACTIONS (4)
  - THERAPEUTIC RESPONSE DECREASED [None]
  - HYPOKALAEMIA [None]
  - PLEURAL EFFUSION [None]
  - LOBAR PNEUMONIA [None]
